FAERS Safety Report 15329255 (Version 6)
Quarter: 2018Q4

REPORT INFORMATION
  Report Type: Spontaneous
  Country: US (occurrence: US)
  Receive Date: 20180829
  Receipt Date: 20181030
  Transmission Date: 20190204
  Serious: No
  Sender: FDA-Public Use
  Company Number: US-UNITED THERAPEUTICS-UNT-2018-013462

PATIENT
  Age: 78 Year
  Sex: Female
  Weight: 54.42 kg

DRUGS (42)
  1. ORENITRAM [Suspect]
     Active Substance: TREPROSTINIL
     Dosage: UNK
     Route: 048
  2. ORENITRAM [Suspect]
     Active Substance: TREPROSTINIL
     Dosage: UNK
     Route: 048
  3. ORENITRAM [Suspect]
     Active Substance: TREPROSTINIL
     Dosage: UNK
     Route: 048
     Dates: start: 201808
  4. LETAIRIS [Suspect]
     Active Substance: AMBRISENTAN
     Dosage: 5 MG, QD
     Route: 048
     Dates: start: 20140523
  5. ORENITRAM [Suspect]
     Active Substance: TREPROSTINIL
     Dosage: 8.625 MG, TID
     Route: 048
     Dates: start: 20180818
  6. ORENITRAM [Suspect]
     Active Substance: TREPROSTINIL
     Indication: PULMONARY ARTERIAL HYPERTENSION
     Dosage: 8.625 MG, TID
     Route: 048
     Dates: start: 20180817
  7. ORENITRAM [Suspect]
     Active Substance: TREPROSTINIL
     Dosage: 7.5 MG, TID
     Route: 048
  8. ORENITRAM [Suspect]
     Active Substance: TREPROSTINIL
     Dosage: UNK
     Route: 048
     Dates: start: 201808
  9. ORENITRAM [Suspect]
     Active Substance: TREPROSTINIL
     Dosage: UNK
     Route: 048
  10. ORENITRAM [Suspect]
     Active Substance: TREPROSTINIL
     Dosage: UNK
     Route: 048
  11. ORENITRAM [Suspect]
     Active Substance: TREPROSTINIL
     Dosage: UNK
     Route: 048
  12. ESOMEPRAZOLE. [Concomitant]
     Active Substance: ESOMEPRAZOLE MAGNESIUM
     Indication: PRODUCT USED FOR UNKNOWN INDICATION
     Route: 065
  13. ORENITRAM [Suspect]
     Active Substance: TREPROSTINIL
     Dosage: 7.5 MG, TID
     Route: 048
  14. ORENITRAM [Suspect]
     Active Substance: TREPROSTINIL
     Dosage: 7.5 MG, TID
     Route: 048
  15. ORENITRAM [Suspect]
     Active Substance: TREPROSTINIL
     Dosage: UNK
     Route: 048
  16. ADEMPAS [Concomitant]
     Active Substance: RIOCIGUAT
     Indication: PRODUCT USED FOR UNKNOWN INDICATION
     Route: 065
  17. WARFARIN [Concomitant]
     Active Substance: WARFARIN
     Indication: PRODUCT USED FOR UNKNOWN INDICATION
     Route: 065
  18. ORENITRAM [Suspect]
     Active Substance: TREPROSTINIL
     Dosage: UNK
     Route: 048
  19. ORENITRAM [Suspect]
     Active Substance: TREPROSTINIL
     Dosage: UNK
     Route: 048
  20. ORENITRAM [Suspect]
     Active Substance: TREPROSTINIL
     Dosage: UNK
     Route: 048
  21. ORENITRAM [Suspect]
     Active Substance: TREPROSTINIL
     Indication: PULMONARY ARTERIAL HYPERTENSION
     Dosage: 8.625 MG, TID
     Route: 048
     Dates: start: 20180817
  22. ORENITRAM [Suspect]
     Active Substance: TREPROSTINIL
     Dosage: UNK
     Route: 048
  23. ADCIRCA [Concomitant]
     Active Substance: TADALAFIL
     Indication: PRODUCT USED FOR UNKNOWN INDICATION
     Route: 065
  24. FUROSEMIDE. [Concomitant]
     Active Substance: FUROSEMIDE
     Indication: PRODUCT USED FOR UNKNOWN INDICATION
     Route: 065
  25. ORENITRAM [Suspect]
     Active Substance: TREPROSTINIL
     Indication: PULMONARY ARTERIAL HYPERTENSION
     Dosage: 8.625 MG, TID
     Route: 048
     Dates: start: 20180817
  26. ORENITRAM [Suspect]
     Active Substance: TREPROSTINIL
     Dosage: UNK
     Route: 048
     Dates: start: 20180818
  27. ORENITRAM [Suspect]
     Active Substance: TREPROSTINIL
     Dosage: 8.625 MG, TID
     Route: 048
     Dates: start: 20180818
  28. ORENITRAM [Suspect]
     Active Substance: TREPROSTINIL
     Dosage: 8.625 MG, TID
     Route: 048
     Dates: start: 20180818
  29. LETAIRIS [Suspect]
     Active Substance: AMBRISENTAN
     Indication: PULMONARY ARTERIAL HYPERTENSION
     Dosage: 10 MG, QD
     Route: 048
     Dates: start: 20140523
  30. ORENITRAM [Suspect]
     Active Substance: TREPROSTINIL
     Dosage: UNK
     Route: 048
     Dates: start: 201808
  31. ORENITRAM [Suspect]
     Active Substance: TREPROSTINIL
     Dosage: UNK
     Route: 048
  32. ORENITRAM [Suspect]
     Active Substance: TREPROSTINIL
     Indication: PULMONARY ARTERIAL HYPERTENSION
     Dosage: 8.625 MG, TID
     Route: 048
     Dates: start: 20180817
  33. ORENITRAM [Suspect]
     Active Substance: TREPROSTINIL
     Indication: PULMONARY ARTERIAL HYPERTENSION
     Dosage: 7.5 MG, TID
     Route: 048
  34. GABAPENTIN. [Concomitant]
     Active Substance: GABAPENTIN
     Indication: PRODUCT USED FOR UNKNOWN INDICATION
  35. ORENITRAM [Suspect]
     Active Substance: TREPROSTINIL
     Dosage: UNK
     Route: 048
     Dates: start: 201808
  36. ORENITRAM [Suspect]
     Active Substance: TREPROSTINIL
     Dosage: UNK
     Route: 048
  37. ORENITRAM [Suspect]
     Active Substance: TREPROSTINIL
     Dosage: 8.625 MG, TID
     Route: 048
     Dates: start: 20180818
  38. SPIRONOLACTONE. [Concomitant]
     Active Substance: SPIRONOLACTONE
     Indication: PRODUCT USED FOR UNKNOWN INDICATION
     Route: 065
  39. ORENITRAM [Suspect]
     Active Substance: TREPROSTINIL
     Dosage: UNK
     Route: 048
     Dates: start: 20180818
  40. ORENITRAM [Suspect]
     Active Substance: TREPROSTINIL
     Dosage: UNK
     Route: 048
     Dates: start: 20180818
  41. ORENITRAM [Suspect]
     Active Substance: TREPROSTINIL
     Dosage: UNK
     Route: 048
     Dates: start: 20180818
  42. ORENITRAM [Suspect]
     Active Substance: TREPROSTINIL
     Dosage: 7.5 MG, TID
     Route: 048

REACTIONS (5)
  - Body temperature increased [Unknown]
  - Nausea [Not Recovered/Not Resolved]
  - Nasal congestion [Not Recovered/Not Resolved]
  - Headache [Not Recovered/Not Resolved]
  - Diarrhoea [Unknown]

NARRATIVE: CASE EVENT DATE: 201808
